FAERS Safety Report 6511766-9 (Version None)
Quarter: 2009Q4

REPORT INFORMATION
  Report Type: 
  Country: None (occurrence: None)
  Receive Date: 20091222
  Receipt Date: 20090406
  Transmission Date: 20100525
  Serious: No
  Sender: FDA-Public Use
  Company Number: US-ASTRAZENECA-2009UW08619

PATIENT
  Age: 59 Year
  Sex: Female
  Weight: 81.6 kg

DRUGS (2)
  1. CRESTOR [Suspect]
     Route: 048
     Dates: start: 20080101
  2. CRESTOR [Suspect]
     Route: 048

REACTIONS (2)
  - INFLUENZA LIKE ILLNESS [None]
  - MYALGIA [None]
